FAERS Safety Report 5351126-X (Version None)
Quarter: 2007Q2

REPORT INFORMATION
  Report Type: 
  Country: None (occurrence: None)
  Receive Date: 20070608
  Receipt Date: 20070530
  Transmission Date: 20071010
  Serious: Yes (Hospitalization)
  Sender: FDA-Public Use
  Company Number: DE-ABBOTT-07P-062-0369272-00

PATIENT
  Age: 58 Year
  Sex: Female

DRUGS (10)
  1. HUMIRA [Suspect]
     Indication: RHEUMATOID ARTHRITIS
     Route: 058
     Dates: start: 20061101, end: 20070201
  2. PREDNISOLONE [Concomitant]
     Indication: RHEUMATOID ARTHRITIS
     Route: 048
     Dates: end: 20061201
  3. PREDNISOLONE [Concomitant]
     Route: 048
     Dates: start: 20061201, end: 20070103
  4. PREDNISOLONE [Concomitant]
     Dosage: TAPER FROM 30 MG TO 0 MG
     Dates: start: 20061201, end: 20070103
  5. OMEPRAZOLE [Concomitant]
     Indication: ULCER
     Route: 048
  6. OMEPRAZOLE [Concomitant]
     Indication: PROPHYLAXIS
  7. ACEMETACIN [Concomitant]
     Indication: RHEUMATOID ARTHRITIS
     Route: 048
  8. BISOPROLOL FUMARATE [Concomitant]
     Indication: HYPERTENSION
     Route: 048
  9. BISOPROLOL FUMARATE [Concomitant]
     Route: 048
  10. THIAMAZOLE [Concomitant]
     Indication: HYPERTHYROIDISM
     Route: 048
     Dates: start: 20070101

REACTIONS (4)
  - BLOOD CREATININE INCREASED [None]
  - FOCAL GLOMERULOSCLEROSIS [None]
  - NEPHRITIS INTERSTITIAL [None]
  - RENAL AMYLOIDOSIS [None]
